FAERS Safety Report 24950644 (Version 4)
Quarter: 2025Q1

REPORT INFORMATION
  Report Type: Spontaneous
  Country: IT (occurrence: IT)
  Receive Date: 20250210
  Receipt Date: 20250312
  Transmission Date: 20250409
  Serious: Yes (Hospitalization, Other)
  Sender: ANI
  Company Number: IT-ANIPHARMA-2025-IT-000006

PATIENT
  Age: 84 Year
  Sex: Male

DRUGS (11)
  1. CANDESARTAN CILEXETIL [Suspect]
     Active Substance: CANDESARTAN CILEXETIL
     Indication: Hypertension
     Route: 048
     Dates: start: 20240101, end: 20240809
  2. URAPIDIL [Suspect]
     Active Substance: URAPIDIL
  3. OMEPRAZOLE [Suspect]
     Active Substance: OMEPRAZOLE
  4. METOPROLOL [Suspect]
     Active Substance: METOPROLOL
     Route: 048
  5. ASPIRIN [Concomitant]
     Active Substance: ASPIRIN
  6. ESOMEPRAZOLE [Concomitant]
     Active Substance: ESOMEPRAZOLE
  7. MIDAZOLAM [Suspect]
     Active Substance: MIDAZOLAM
  8. HALOPERIDOL [Suspect]
     Active Substance: HALOPERIDOL
  9. CARDURA [Suspect]
     Active Substance: DOXAZOSIN MESYLATE
  10. IRBESARTAN [Suspect]
     Active Substance: IRBESARTAN
  11. AMLODIPINE [Suspect]
     Active Substance: AMLODIPINE BESYLATE

REACTIONS (1)
  - Hypertensive encephalopathy [Recovering/Resolving]

NARRATIVE: CASE EVENT DATE: 20240809
